FAERS Safety Report 9125182 (Version 1)
Quarter: 2013Q1

REPORT INFORMATION
  Report Type: Spontaneous
  Country: US (occurrence: US)
  Receive Date: 20130227
  Receipt Date: 20130227
  Transmission Date: 20140127
  Serious: No
  Sender: FDA-Public Use
  Company Number: US-ASTRAZENECA-2013SE11683

PATIENT
  Age: 65 Year
  Sex: Female
  Weight: 90.7 kg

DRUGS (10)
  1. CRESTOR [Suspect]
     Indication: BLOOD CHOLESTEROL
     Route: 048
     Dates: start: 2001, end: 2002
  2. CRESTOR [Suspect]
     Indication: BLOOD CHOLESTEROL
     Route: 048
     Dates: start: 2002
  3. CRESTOR [Suspect]
     Indication: BLOOD CHOLESTEROL
     Route: 048
     Dates: start: 2011
  4. PLAVIX [Concomitant]
     Indication: STENT PLACEMENT
  5. JANUVIA [Concomitant]
     Indication: DIABETES MELLITUS
  6. CORICIDIN HBP [Concomitant]
     Indication: LARYNGITIS
  7. UNKNOWN BP MED [Concomitant]
     Indication: BLOOD PRESSURE
  8. LIPITOR [Concomitant]
  9. ZOCOR [Concomitant]
  10. SIMVASTATIN [Concomitant]

REACTIONS (5)
  - Aphonia [Unknown]
  - Laryngitis [Unknown]
  - Low density lipoprotein increased [Unknown]
  - Blood triglycerides increased [Unknown]
  - Drug ineffective [Unknown]
